FAERS Safety Report 18602145 (Version 1)
Quarter: 2020Q4

REPORT INFORMATION
  Report Type: Spontaneous
  Country: DK (occurrence: DK)
  Receive Date: 20201210
  Receipt Date: 20201210
  Transmission Date: 20210114
  Serious: Yes (Hospitalization)
  Sender: FDA-Public Use
  Company Number: DK-BRISTOL-MYERS SQUIBB COMPANY-BMS-2020-104588

PATIENT
  Age: 55 Year
  Sex: Female

DRUGS (6)
  1. OPDIVO [Suspect]
     Active Substance: NIVOLUMAB
     Indication: BRAIN CANCER METASTATIC
     Dosage: 68.3 MILLIGRAM, Q3WK (THREE DOSES)
     Route: 065
     Dates: start: 20190129, end: 20190315
  2. OPDIVO [Suspect]
     Active Substance: NIVOLUMAB
     Dosage: 384 MILLIGRAM, Q3WK
     Route: 065
     Dates: start: 20190828, end: 20190828
  3. OPDIVO [Suspect]
     Active Substance: NIVOLUMAB
     Dosage: 396 MILLIGRAM, Q3WK
     Dates: start: 20190426, end: 20190704
  4. OPDIVO [Suspect]
     Active Substance: NIVOLUMAB
     Dosage: 66 MILLIGRAM
     Route: 065
     Dates: start: 20190405, end: 20190405
  5. OPDIVO [Suspect]
     Active Substance: NIVOLUMAB
     Dosage: 372 MILLIGRAM
     Route: 065
     Dates: start: 20190731, end: 20190731
  6. YERVOY [Suspect]
     Active Substance: IPILIMUMAB
     Indication: BRAIN CANCER METASTATIC
     Dosage: 200 MILLIGRAM, Q3WK
     Dates: start: 20190129, end: 20190405

REACTIONS (19)
  - Arthralgia [Unknown]
  - Hypometabolism [Unknown]
  - Intentional product use issue [Unknown]
  - Dermatitis allergic [Unknown]
  - Appetite disorder [Unknown]
  - Vomiting [Unknown]
  - Alopecia [Unknown]
  - Thyroiditis [Unknown]
  - Fatigue [Unknown]
  - Hypophysitis [Unknown]
  - Dizziness [Unknown]
  - Influenza like illness [Unknown]
  - Fluid retention [Unknown]
  - Dysphonia [Unknown]
  - Myalgia [Unknown]
  - Photophobia [Unknown]
  - Nausea [Unknown]
  - Constipation [Unknown]
  - Headache [Unknown]

NARRATIVE: CASE EVENT DATE: 201904
